FAERS Safety Report 18362109 (Version 1)
Quarter: 2020Q4

REPORT INFORMATION
  Report Type: Spontaneous
  Country: DE (occurrence: DE)
  Receive Date: 20201009
  Receipt Date: 20201009
  Transmission Date: 20210114
  Serious: Yes (Other)
  Sender: FDA-Public Use
  Company Number: DE-ROCHE-2690933

PATIENT
  Sex: Female

DRUGS (7)
  1. CYCLOSPORINE. [Concomitant]
     Active Substance: CYCLOSPORINE
     Indication: SYSTEMIC LUPUS ERYTHEMATOSUS
  2. CYCLOPHOSPHAMIDE. [Concomitant]
     Active Substance: CYCLOPHOSPHAMIDE
     Indication: SYSTEMIC LUPUS ERYTHEMATOSUS
  3. METHOTREXATE. [Concomitant]
     Active Substance: METHOTREXATE
     Indication: SYSTEMIC LUPUS ERYTHEMATOSUS
  4. CORTISONE [Concomitant]
     Active Substance: CORTISONE
     Indication: NEUROMYELITIS OPTICA SPECTRUM DISORDER
     Dosage: PULSE THERAPIES
  5. RITUXIMAB. [Suspect]
     Active Substance: RITUXIMAB
     Indication: NEUROMYELITIS OPTICA SPECTRUM DISORDER
     Route: 065
     Dates: start: 2015
  6. TOCILIZUMAB. [Suspect]
     Active Substance: TOCILIZUMAB
     Indication: NEUROMYELITIS OPTICA SPECTRUM DISORDER
     Route: 065
  7. AZATHIOPRINE. [Concomitant]
     Active Substance: AZATHIOPRINE
     Indication: SYSTEMIC LUPUS ERYTHEMATOSUS

REACTIONS (5)
  - Leukopenia [Recovered/Resolved]
  - B-lymphocyte count decreased [Unknown]
  - Granulocytopenia [Recovered/Resolved]
  - Intentional product use issue [Unknown]
  - Off label use [Unknown]
